FAERS Safety Report 5754744-X (Version None)
Quarter: 2008Q2

REPORT INFORMATION
  Report Type: 
  Country: None (occurrence: None)
  Receive Date: 20080527
  Receipt Date: 20080519
  Transmission Date: 20081010
  Serious: Yes (Other)
  Sender: FDA-Public Use
  Company Number: 028008

PATIENT
  Age: 16 Year
  Sex: Male

DRUGS (10)
  1. CIPROFLOXACIN [Suspect]
     Indication: PERIANAL ABSCESS
     Dosage: 400 MG, BID, INTRAVENOUS
     Route: 042
  2. CIPROFLOXACIN [Suspect]
     Indication: RECTAL ABSCESS
     Dosage: 400 MG, BID, INTRAVENOUS
     Route: 042
  3. AZATHIOPRINE [Concomitant]
  4. MESALAMINE [Concomitant]
  5. METRONIDAZOLE HCL [Concomitant]
  6. METHYLPREDNISOLONE [Concomitant]
  7. LANSOPRAZOLE [Concomitant]
  8. FERROUS SULFATE TAB [Concomitant]
  9. RANITIDINE [Concomitant]
  10. INFLIXIMAB (INFLIXIMAB) [Concomitant]

REACTIONS (2)
  - BRADYCARDIA [None]
  - ELECTROCARDIOGRAM QT PROLONGED [None]
